FAERS Safety Report 20094628 (Version 3)
Quarter: 2021Q4

REPORT INFORMATION
  Report Type: Other
  Country: JP (occurrence: JP)
  Receive Date: 20211122
  Receipt Date: 20211208
  Transmission Date: 20220303
  Serious: Yes (Other)
  Sender: FDA-Public Use
  Company Number: JP-CHUGAI-2021026768

PATIENT
  Age: 6 Decade
  Sex: Female

DRUGS (2)
  1. XELODA [Suspect]
     Active Substance: CAPECITABINE
     Indication: Neoplasm malignant
     Route: 048
  2. OXALIPLATIN [Concomitant]
     Active Substance: OXALIPLATIN
     Indication: Neoplasm malignant
     Route: 041

REACTIONS (4)
  - Neuropathy peripheral [Unknown]
  - Nausea [Unknown]
  - Faeces soft [Unknown]
  - Fatigue [Unknown]
